FAERS Safety Report 24043350 (Version 1)
Quarter: 2024Q3

REPORT INFORMATION
  Report Type: Spontaneous
  Country: JP (occurrence: JP)
  Receive Date: 20240702
  Receipt Date: 20240702
  Transmission Date: 20241016
  Serious: Yes (Other)
  Sender: AMGEN
  Company Number: JP-DSJP-DSJ-2024-127367

PATIENT

DRUGS (2)
  1. DENOSUMAB [Suspect]
     Active Substance: DENOSUMAB
     Indication: Bone density decreased
     Dosage: UNK
     Route: 058
     Dates: start: 202401
  2. ELDECALCITOL [Concomitant]
     Active Substance: ELDECALCITOL
     Indication: Bone density decreased
     Dosage: UNK
     Route: 048

REACTIONS (2)
  - Recurrent cancer [Not Recovered/Not Resolved]
  - Drug hypersensitivity [Not Recovered/Not Resolved]
